FAERS Safety Report 19020538 (Version 3)
Quarter: 2021Q2

REPORT INFORMATION
  Report Type: Spontaneous
  Country: US (occurrence: US)
  Receive Date: 20210317
  Receipt Date: 20210602
  Transmission Date: 20210717
  Serious: Yes (Hospitalization, Other)
  Sender: FDA-Public Use
  Company Number: US-PFIZER INC-2021204273

PATIENT
  Age: 77 Year
  Sex: Male

DRUGS (1)
  1. INLYTA [Suspect]
     Active Substance: AXITINIB
     Indication: RENAL CANCER
     Dosage: 5 MG, 2X/DAY(TWICE DAILY FOR 14 DAYS)

REACTIONS (14)
  - Syncope [Unknown]
  - Aphonia [Unknown]
  - Fatigue [Unknown]
  - Stomatitis [Unknown]
  - Gastrointestinal ulcer haemorrhage [Recovered/Resolved]
  - Nephrolithiasis [Unknown]
  - Dry mouth [Unknown]
  - Blood pressure abnormal [Unknown]
  - Melaena [Unknown]
  - Hypertension [Unknown]
  - Sleep disorder [Unknown]
  - Glossitis [Recovering/Resolving]
  - Glossodynia [Recovering/Resolving]
  - Dysphonia [Recovering/Resolving]

NARRATIVE: CASE EVENT DATE: 202103
